FAERS Safety Report 5827022-8 (Version None)
Quarter: 2008Q3

REPORT INFORMATION
  Report Type: 
  Country: None (occurrence: None)
  Receive Date: 20080729
  Receipt Date: 20080729
  Transmission Date: 20090109
  Serious: Yes (Hospitalization)
  Sender: FDA-Public Use
  Company Number: None

PATIENT
  Age: 69 Year
  Sex: Male
  Weight: 76.57 kg

DRUGS (1)
  1. CIPROFLOXACIN IN DEXTROSE [Suspect]
     Indication: INFECTION
     Dosage: 400 MG EVERY DAY IV
     Route: 042
     Dates: start: 20080330, end: 20080330

REACTIONS (2)
  - INFUSION SITE ERYTHEMA [None]
  - RASH [None]
